FAERS Safety Report 10760784 (Version 1)
Quarter: 2015Q1

REPORT INFORMATION
  Report Type: Report from Study
  Country: US (occurrence: US)
  Receive Date: 20150204
  Receipt Date: 20150204
  Transmission Date: 20150721
  Serious: Yes (Hospitalization, Other)
  Sender: FDA-Public Use
  Company Number: US-AMGEN-USASL2015008477

PATIENT
  Age: 83 Year
  Sex: Female

DRUGS (1)
  1. ENBREL [Suspect]
     Active Substance: ETANERCEPT
     Indication: RHEUMATOID ARTHRITIS
     Dosage: 50 MG, QWK
     Route: 065
     Dates: start: 20131213, end: 201501

REACTIONS (11)
  - Pain in extremity [Recovered/Resolved]
  - Back pain [Not Recovered/Not Resolved]
  - Breast pain [Recovered/Resolved]
  - Breast swelling [Recovered/Resolved]
  - Hyperhidrosis [Recovered/Resolved]
  - Aortic aneurysm [Recovered/Resolved]
  - Neoplasm [Recovered/Resolved]
  - Eye pain [Recovered/Resolved]
  - Neck pain [Recovered/Resolved]
  - Memory impairment [Recovered/Resolved]
  - Headache [Recovered/Resolved]
